FAERS Safety Report 5021703-4 (Version None)
Quarter: 2006Q2

REPORT INFORMATION
  Report Type: 
  Country: None (occurrence: None)
  Receive Date: 20060605
  Receipt Date: 20060523
  Transmission Date: 20061013
  Serious: Yes (Other)
  Sender: FDA-Public Use
  Company Number: 216455

PATIENT
  Age: 65 Year
  Sex: Female
  Weight: 78 kg

DRUGS (9)
  1. RAPTIVA [Suspect]
     Indication: LICHEN PLANUS
     Dosage: 1 MG/KG, 1/WEEK, SUBCUTANEOUS
     Route: 058
     Dates: start: 20050511, end: 20050719
  2. DILANTIN [Concomitant]
  3. PHENOBARBITAL TAB [Concomitant]
  4. PRAVACHOL [Concomitant]
  5. PREVACID [Concomitant]
  6. DILTIAZEM HCL [Concomitant]
  7. ASPIRIN [Concomitant]
  8. CALCIUM (CALCIUM NOS) [Concomitant]
  9. ESTROVEN (FOLIC ACID, CIMICIFUGA, KUDZU, SOY) [Concomitant]

REACTIONS (4)
  - ANTI-SS-A ANTIBODY POSITIVE [None]
  - ANTINUCLEAR ANTIBODY POSITIVE [None]
  - CUTANEOUS LUPUS ERYTHEMATOSUS [None]
  - DNA ANTIBODY POSITIVE [None]
